FAERS Safety Report 26134018 (Version 1)
Quarter: 2025Q4

REPORT INFORMATION
  Report Type: Spontaneous
  Country: US (occurrence: US)
  Receive Date: 20251209
  Receipt Date: 20251209
  Transmission Date: 20260117
  Serious: No
  Sender: ROCHE
  Company Number: US-ROCHE-10000450595

PATIENT
  Sex: Female
  Weight: 65.59 kg

DRUGS (2)
  1. PHESGO [Suspect]
     Active Substance: HYALURONIDASE-ZZXF\PERTUZUMAB\TRASTUZUMAB
     Indication: Breast cancer
     Dosage: INITIAL DOSE
     Route: 058
     Dates: start: 20251021
  2. PHESGO [Suspect]
     Active Substance: HYALURONIDASE-ZZXF\PERTUZUMAB\TRASTUZUMAB
     Dosage: MAINTENANCE DOSE, 10 ML DOSE
     Route: 058
     Dates: start: 20251114

REACTIONS (1)
  - Injection related reaction [Unknown]
